FAERS Safety Report 24146400 (Version 2)
Quarter: 2024Q3

REPORT INFORMATION
  Report Type: Report from Study
  Country: CA (occurrence: CA)
  Receive Date: 20240729
  Receipt Date: 20240730
  Transmission Date: 20241016
  Serious: Yes (Other)
  Sender: ABBVIE
  Company Number: CA-ABBVIE-5854019

PATIENT
  Age: 31 Year
  Sex: Male

DRUGS (1)
  1. RINVOQ [Suspect]
     Active Substance: UPADACITINIB
     Indication: Crohn^s disease
     Dosage: DRUG END DATE JUL 2024
     Route: 048
     Dates: start: 20240716

REACTIONS (8)
  - Intestinal obstruction [Unknown]
  - Abdominal pain [Unknown]
  - Abdominal pain upper [Unknown]
  - Swelling [Unknown]
  - Dyspepsia [Unknown]
  - Feeding disorder [Unknown]
  - Constipation [Unknown]
  - Abdominal distension [Unknown]

NARRATIVE: CASE EVENT DATE: 20240701
